FAERS Safety Report 6244522-X (Version None)
Quarter: 2009Q2

REPORT INFORMATION
  Report Type: 
  Country: None (occurrence: None)
  Receive Date: 20090623
  Receipt Date: 20090611
  Transmission Date: 20091009
  Serious: Yes (Other)
  Sender: FDA-Public Use
  Company Number: 1000006931

PATIENT
  Age: 71 Year
  Sex: Male

DRUGS (5)
  1. LEXAPRO [Suspect]
     Indication: DEPRESSION
     Dosage: 10 MG (10 MG, 1 IN 1 D), ORAL
     Route: 048
     Dates: start: 20090418
  2. RISPERDAL (SOLUTION) [Concomitant]
  3. METFORMIN HCL [Concomitant]
  4. NIFEDIPINE [Concomitant]
  5. XIAOKE WAN [Concomitant]

REACTIONS (1)
  - GRAND MAL CONVULSION [None]
